FAERS Safety Report 4504051-8 (Version None)
Quarter: 2004Q4

REPORT INFORMATION
  Report Type: 
  Country: None (occurrence: None)
  Receive Date: 20041115
  Receipt Date: 20041105
  Transmission Date: 20050328
  Serious: Yes (Death)
  Sender: FDA-Public Use
  Company Number: 200420962BWH

PATIENT
  Age: 76 Year
  Sex: Male
  Weight: 94.8018 kg

DRUGS (10)
  1. LEVITRA [Suspect]
     Indication: ERECTILE DYSFUNCTION
     Dosage: SEE IMAGE
     Dates: start: 20040101
  2. LEVITRA [Suspect]
     Indication: ERECTILE DYSFUNCTION
     Dosage: SEE IMAGE
     Dates: start: 20041104
  3. LEVOXYL [Concomitant]
  4. MULTIVITAMIN [Concomitant]
  5. NIZORAL [Concomitant]
  6. LEVOTHROID [Concomitant]
  7. NIACIN [Concomitant]
  8. GENERIC ^HEALTH FOOD^ CHOLESTEROL REDUCING PILL [Concomitant]
  9. VIAGRA [Concomitant]
  10. TINEA CREAM [Concomitant]

REACTIONS (6)
  - ATHEROSCLEROSIS [None]
  - CARDIAC ARREST [None]
  - CIRCULATORY COLLAPSE [None]
  - CORONARY ARTERY ATHEROSCLEROSIS [None]
  - NAUSEA [None]
  - VENTRICULAR FIBRILLATION [None]
